FAERS Safety Report 8361740 (Version 3)
Quarter: 2016Q3

REPORT INFORMATION
  Report Type: Report from Study
  Country: CA (occurrence: CA)
  Receive Date: 20120130
  Receipt Date: 20160721
  Transmission Date: 20161109
  Serious: Yes (Other)
  Sender: FDA-Public Use
  Company Number: CA-UCBSA-047637

PATIENT
  Age: 44 Year
  Sex: Female
  Weight: 77 kg

DRUGS (13)
  1. AMITRIPTYLINE [Concomitant]
     Active Substance: AMITRIPTYLINE
     Indication: TEMPOROMANDIBULAR JOINT SYNDROME
     Dosage: 24 MG ONCE IN EVERY HOUR
     Route: 048
  2. VENTOLIN [Concomitant]
     Active Substance: ALBUTEROL SULFATE
     Indication: ASTHMA
     Dosage: USED AS NECESSARY
     Route: 055
  3. FLOVENT [Concomitant]
     Active Substance: FLUTICASONE PROPIONATE
     Indication: ASTHMA
     Dosage: USED AS NECESSARY
     Route: 055
  4. RANITIDINE. [Concomitant]
     Active Substance: RANITIDINE
     Indication: HYPERCHLORHYDRIA
     Route: 048
  5. EMTEC [Concomitant]
     Indication: SLEEP DISORDER
     Dosage: 30 MG ONCE EVERY HOUR AS NECESSARY
     Route: 048
  6. PREDNISONE. [Concomitant]
     Active Substance: PREDNISONE
     Indication: PRODUCT USED FOR UNKNOWN INDICATION
     Dosage: WEANED OFF
  7. CERTOLIZUMAB PEGOL RA [Suspect]
     Active Substance: CERTOLIZUMAB PEGOL
     Dosage: 200 MG, EV 2 WEEKS(QOW)
     Route: 058
     Dates: start: 201203, end: 201203
  8. AMITRIPTYLINE [Concomitant]
     Active Substance: AMITRIPTYLINE
     Indication: FIBROMYALGIA
  9. RAMIPRIL. [Concomitant]
     Active Substance: RAMIPRIL
     Indication: HYPERTENSION
  10. ATIVAN [Concomitant]
     Active Substance: LORAZEPAM
     Indication: SLEEP DISORDER
     Dosage: 1 MG EVERY HOUR AS NECESSARY
     Route: 060
  11. CERTOLIZUMAB PEGOL RA [Suspect]
     Active Substance: CERTOLIZUMAB PEGOL
     Dosage: 200 MG, EV 2 WEEKS(QOW)
     Route: 058
     Dates: start: 20120111, end: 20120126
  12. CERTOLIZUMAB PEGOL RA [Suspect]
     Active Substance: CERTOLIZUMAB PEGOL
     Indication: RHEUMATOID ARTHRITIS
     Dosage: 200 MG, EV 2 WEEKS(QOW)
     Route: 058
     Dates: start: 20111208, end: 201112
  13. MACROBID [Concomitant]
     Active Substance: NITROFURANTOIN\NITROFURANTOIN MONOHYDRATE
     Indication: URINARY TRACT INFECTION
     Dosage: 1 TAB QHS
     Route: 048
     Dates: start: 20111224

REACTIONS (8)
  - Cystitis [Recovering/Resolving]
  - Dyspnoea [Not Recovered/Not Resolved]
  - Urine cytology abnormal [Not Recovered/Not Resolved]
  - Rheumatoid arthritis [Unknown]
  - Urinary tract infection [Recovering/Resolving]
  - Dysphonia [Recovered/Resolved]
  - Asthma [Not Recovered/Not Resolved]
  - Squamous cell carcinoma [Unknown]

NARRATIVE: CASE EVENT DATE: 201112
